FAERS Safety Report 8476656-3 (Version None)
Quarter: 2012Q2

REPORT INFORMATION
  Report Type: 
  Country: None (occurrence: None)
  Receive Date: 20120628
  Receipt Date: 20120619
  Transmission Date: 20120825
  Serious: No
  Sender: FDA-Public Use
  Company Number: US-B.I. PHARMACEUTICALS,INC./RIDGEFIELD-2012-BP-13010BP

PATIENT
  Sex: Male
  Weight: 87.09 kg

DRUGS (2)
  1. TRADJENTA [Suspect]
     Route: 048
  2. TRADJENTA [Suspect]
     Indication: TYPE 2 DIABETES MELLITUS
     Dosage: 5 MG
     Route: 048
     Dates: start: 20120305, end: 20120508

REACTIONS (1)
  - PANCREATITIS [None]
